FAERS Safety Report 7530386-0 (Version None)
Quarter: 2011Q2

REPORT INFORMATION
  Report Type: 
  Country: None (occurrence: None)
  Receive Date: 20110607
  Receipt Date: 20100628
  Transmission Date: 20111010
  Serious: No
  Sender: FDA-Public Use
  Company Number: US-TYCO HEALTHCARE/MALLINCKRODT-T201001538

PATIENT
  Sex: Female

DRUGS (6)
  1. DUONEB [Concomitant]
     Dosage: UNK
  2. OCTREOSCAN [Suspect]
     Indication: NEUROENDOCRINE TUMOUR
     Dosage: 7.98 MCI, SINGLE
     Route: 042
     Dates: start: 20100614, end: 20100614
  3. LEVOXYL [Concomitant]
     Dosage: UNK
  4. FLOVENT [Concomitant]
     Dosage: UNK
  5. COMBIVENT [Concomitant]
     Dosage: UNK
  6. NALTREXONE HYDROCHLORIDE [Concomitant]
     Dosage: UNK

REACTIONS (7)
  - NAUSEA [None]
  - PYREXIA [None]
  - ASTHENIA [None]
  - FATIGUE [None]
  - DIARRHOEA [None]
  - HEADACHE [None]
  - GASTROINTESTINAL PAIN [None]
